FAERS Safety Report 4372089-X (Version None)
Quarter: 2004Q2

REPORT INFORMATION
  Report Type: 
  Country: None (occurrence: None)
  Receive Date: 20040602
  Receipt Date: 20040519
  Transmission Date: 20050107
  Serious: Yes (Disabling)
  Sender: FDA-Public Use
  Company Number: S04-UKI-02284-01

PATIENT
  Age: 34 Year
  Sex: Male

DRUGS (3)
  1. CIPRALEX (ESCITALOPRAM) [Suspect]
     Indication: PANIC REACTION
     Dosage: 10 MG QD PO
     Route: 048
     Dates: start: 20040507, end: 20040509
  2. ASPIRIN [Concomitant]
  3. IBUPROFEN [Concomitant]

REACTIONS (4)
  - DIFFICULTY IN WALKING [None]
  - DYSKINESIA [None]
  - RESTLESSNESS [None]
  - TREMOR [None]
